FAERS Safety Report 11878113 (Version 1)
Quarter: 2015Q4

REPORT INFORMATION
  Report Type: Spontaneous
  Country: US (occurrence: None)
  Receive Date: 20151229
  Receipt Date: 20151229
  Transmission Date: 20160305
  Serious: No
  Sender: FDA-Public Use
  Company Number: None

PATIENT
  Age: 65 Year
  Sex: Female
  Weight: 45.36 kg

DRUGS (8)
  1. MOVIPREP [Suspect]
     Active Substance: ASCORBIC ACID\POLYETHYLENE GLYCOL 3350\POTASSIUM CHLORIDE\SODIUM ASCORBATE\SODIUM CHLORIDE\SODIUM SULFATE
     Indication: COLONOSCOPY
     Dosage: SOLUTION FOR COLONOSPY POWDER FORM
     Dates: start: 20151007, end: 20151007
  2. VITAMIN B COMPLEX [Concomitant]
     Active Substance: CYANOCOBALAMIN\DEXPANTHENOL\NIACINAMIDE\PYRIDOXINE HYDROCHLORIDE\RIBOFLAVIN 5^-PHOSPHATE SODIUM\THIAMINE HYDROCHLORIDE\VITAMIN B COMPLEX
  3. L-LYSUE [Concomitant]
  4. MAGAIUM [Concomitant]
  5. MULTIV [Concomitant]
  6. FISH OIL [Concomitant]
     Active Substance: FISH OIL
  7. CALCIUM [Concomitant]
     Active Substance: CALCIUM
  8. VITA D [Concomitant]

REACTIONS (4)
  - Abdominal pain upper [None]
  - Flatulence [None]
  - Procedural pain [None]
  - Product packaging confusion [None]

NARRATIVE: CASE EVENT DATE: 20151008
